FAERS Safety Report 7361379-4 (Version None)
Quarter: 2011Q1

REPORT INFORMATION
  Report Type: 
  Country: None (occurrence: None)
  Receive Date: 20110318
  Receipt Date: 20110311
  Transmission Date: 20110831
  Serious: Yes (Hospitalization)
  Sender: FDA-Public Use
  Company Number: US-US-EMD SERONO, INC.-7041411

PATIENT
  Sex: Female

DRUGS (2)
  1. REBIF [Suspect]
     Indication: MULTIPLE SCLEROSIS
     Route: 058
     Dates: start: 20110105
  2. NEURONTIN [Concomitant]
     Indication: PAIN IN EXTREMITY

REACTIONS (4)
  - DIZZINESS [None]
  - CONFUSIONAL STATE [None]
  - INJECTION SITE PAIN [None]
  - PAIN IN EXTREMITY [None]
